FAERS Safety Report 12448484 (Version 1)
Quarter: 2016Q2

REPORT INFORMATION
  Report Type: Spontaneous
  Country: US (occurrence: US)
  Receive Date: 20160608
  Receipt Date: 20160608
  Transmission Date: 20160815
  Serious: No
  Sender: FDA-Public Use
  Company Number: US-ASTRAZENECA-2015SE28246

PATIENT
  Age: 287 Day
  Sex: Male
  Weight: 6.4 kg

DRUGS (4)
  1. FLOVENT [Concomitant]
     Active Substance: FLUTICASONE PROPIONATE
     Dosage: DAILY
  2. SYNAGIS [Suspect]
     Active Substance: PALIVIZUMAB
     Dosage: 15MG/KG MONTHLY, 100MG/1ML
     Route: 030
     Dates: start: 201501
  3. SYNAGIS [Suspect]
     Active Substance: PALIVIZUMAB
     Dosage: 15MG/KG MONTHLY, 50MG/0.5ML
     Route: 030
  4. ALBUTEROL. [Concomitant]
     Active Substance: ALBUTEROL
     Dosage: AS NEEDED

REACTIONS (1)
  - Nasopharyngitis [Recovered/Resolved]

NARRATIVE: CASE EVENT DATE: 20150316
